FAERS Safety Report 7694387-4 (Version None)
Quarter: 2011Q3

REPORT INFORMATION
  Report Type: 
  Country: None (occurrence: None)
  Receive Date: 20110819
  Receipt Date: 20110815
  Transmission Date: 20111222
  Serious: Yes (Hospitalization)
  Sender: FDA-Public Use
  Company Number: FR-JNJFOC-20110805079

PATIENT
  Age: 56 Year
  Sex: Male

DRUGS (3)
  1. XARELTO [Suspect]
     Indication: HIP ARTHROPLASTY
     Route: 048
     Dates: start: 20100831, end: 20101004
  2. VOLTAREN [Concomitant]
  3. METRONIDAZOLE [Suspect]
     Indication: ILL-DEFINED DISORDER
     Dosage: 3-4 TIMES DAILY
     Route: 048
     Dates: start: 20100924, end: 20101001

REACTIONS (9)
  - MALAISE [None]
  - NAUSEA [None]
  - CYTOLYTIC HEPATITIS [None]
  - PRURITUS [None]
  - DYSGEUSIA [None]
  - PYREXIA [None]
  - VOMITING [None]
  - RASH [None]
  - CHOLESTASIS [None]
